FAERS Safety Report 13021875 (Version 1)
Quarter: 2016Q4

REPORT INFORMATION
  Report Type: Spontaneous
  Country: IT (occurrence: IT)
  Receive Date: 20161213
  Receipt Date: 20161213
  Transmission Date: 20170207
  Serious: Yes (Other)
  Sender: FDA-Public Use
  Company Number: IT-TEVA-715769ACC

PATIENT
  Age: 44 Year
  Sex: Male
  Weight: 84 kg

DRUGS (1)
  1. COPAXONE [Suspect]
     Active Substance: GLATIRAMER ACETATE
     Indication: MULTIPLE SCLEROSIS
     Dosage: 40 MG CYCLICAL STRENGTH: UNKNOWN
     Route: 058
     Dates: start: 20160224, end: 20161116

REACTIONS (6)
  - Dyspnoea [Recovered/Resolved]
  - Choking sensation [Unknown]
  - Product packaging issue [Unknown]
  - Underdose [Unknown]
  - Hot flush [Unknown]
  - Erythema [Recovered/Resolved]

NARRATIVE: CASE EVENT DATE: 20161114
